FAERS Safety Report 7539907-5 (Version None)
Quarter: 2011Q2

REPORT INFORMATION
  Report Type: 
  Country: None (occurrence: None)
  Receive Date: 20110610
  Receipt Date: 20110607
  Transmission Date: 20111010
  Serious: Yes (Hospitalization)
  Sender: FDA-Public Use
  Company Number: DE-SANOFI-AVENTIS-2011SA035634

PATIENT
  Age: 70 Year
  Sex: Female
  Weight: 76 kg

DRUGS (18)
  1. ASPIRIN [Interacting]
     Route: 048
     Dates: start: 20000101
  2. AMLODIPINE [Concomitant]
     Route: 048
     Dates: start: 20080101
  3. PANTOPRAZOLE [Concomitant]
     Route: 048
     Dates: start: 20080101
  4. TILIDINE [Concomitant]
     Dosage: 3 X 20 GTT
     Route: 048
     Dates: start: 20100611, end: 20100630
  5. ESTRAMON [Concomitant]
     Indication: MENOPAUSAL SYMPTOMS
     Dosage: IN THE AVERAGE OF 25 MCG/DAY, 2 PLASTER/WEEK
     Route: 062
     Dates: start: 19930101, end: 20100601
  6. OXYGESIC [Concomitant]
     Route: 048
     Dates: start: 20100609, end: 20100611
  7. EMBOLEX [Interacting]
     Route: 058
     Dates: start: 20100608, end: 20100619
  8. EMBOLEX [Interacting]
     Route: 058
     Dates: start: 20100704, end: 20100824
  9. METOPROLOL TARTRATE [Concomitant]
     Indication: CORONARY ARTERY DISEASE
     Dosage: DOSE/APPLICATION: IN THE MORNING 95MG, IN THE EVENING 47,5MG
     Route: 048
     Dates: start: 20000101
  10. OXYGESIC [Concomitant]
     Dosage: MAXIMUM 6 CAPSULES/DAY
     Route: 048
     Dates: start: 20100609, end: 20100616
  11. METOCLOPRAMIDE [Concomitant]
     Indication: NAUSEA
     Dosage: BEI BEDARF; DOSIERUNG UND DARREICHUNG UNBEKANNT
     Route: 065
     Dates: start: 20100615
  12. ENOXAPARIN SODIUM [Interacting]
     Route: 058
     Dates: start: 20100825, end: 20100907
  13. CEFUROXIME [Concomitant]
     Indication: INFECTION PROPHYLAXIS
     Route: 042
     Dates: start: 20100609, end: 20100609
  14. ACETAMINOPHEN [Concomitant]
     Dosage: 3 X 1000 MG/DAY
     Route: 048
     Dates: start: 20100609, end: 20100613
  15. NOVALGIN [Concomitant]
     Dosage: 4 X 40 GTT
     Route: 048
     Dates: start: 20100613, end: 20100619
  16. ENOXAPARIN SODIUM [Suspect]
     Route: 058
     Dates: start: 20100620, end: 20100703
  17. LORZAAR [Concomitant]
     Dosage: DOSE EACH APPLICATION: IN THE MORNING 50MG, IN THE EVENING 25MG
     Route: 048
     Dates: start: 20000101
  18. DICLOFENAC RESINATE [Concomitant]
     Route: 048
     Dates: start: 20100609, end: 20100610

REACTIONS (4)
  - DRUG INTERACTION [None]
  - HAEMATOMA [None]
  - WOUND SECRETION [None]
  - WOUND INFECTION [None]
